FAERS Safety Report 16876534 (Version 2)
Quarter: 2020Q1

REPORT INFORMATION
  Report Type: Report from Study
  Country: US (occurrence: US)
  Receive Date: 20191002
  Receipt Date: 20200204
  Transmission Date: 20200409
  Serious: No
  Sender: FDA-Public Use
  Company Number: PHEH2019US040142

PATIENT
  Sex: Female

DRUGS (1)
  1. COSENTYX [Suspect]
     Active Substance: SECUKINUMAB
     Indication: PSORIATIC ARTHROPATHY
     Dosage: 150 MG, QMO
     Route: 058
     Dates: start: 201907

REACTIONS (4)
  - Inappropriate schedule of product administration [Unknown]
  - Pruritus [Recovering/Resolving]
  - Arthralgia [Recovering/Resolving]
  - Psoriasis [Recovering/Resolving]
